FAERS Safety Report 13720922 (Version 1)
Quarter: 2017Q3

REPORT INFORMATION
  Report Type: Spontaneous
  Country: US (occurrence: US)
  Receive Date: 20170706
  Receipt Date: 20170706
  Transmission Date: 20171127
  Serious: Yes (Death, Hospitalization, Disabling, Other)
  Sender: FDA-Public Use
  Company Number: US-ACCORD-053180

PATIENT
  Age: 67 Year
  Sex: Male

DRUGS (3)
  1. CARBOPLATIN. [Suspect]
     Active Substance: CARBOPLATIN
     Indication: SMALL CELL LUNG CANCER
  2. CISPLATIN. [Suspect]
     Active Substance: CISPLATIN
     Indication: SMALL CELL LUNG CANCER
  3. ETOPOSIDE. [Suspect]
     Active Substance: ETOPOSIDE
     Indication: SMALL CELL LUNG CANCER

REACTIONS (8)
  - Clostridium difficile colitis [Unknown]
  - Odynophagia [Unknown]
  - Respiratory failure [Fatal]
  - Off label use [Unknown]
  - Radiation pneumonitis [Fatal]
  - Disseminated intravascular coagulation [Unknown]
  - Dysphagia [Unknown]
  - Pancytopenia [Unknown]
